FAERS Safety Report 8478813-9 (Version None)
Quarter: 2012Q2

REPORT INFORMATION
  Report Type: 
  Country: None (occurrence: None)
  Receive Date: 20120629
  Receipt Date: 20120621
  Transmission Date: 20120825
  Serious: Yes (Hospitalization)
  Sender: FDA-Public Use
  Company Number: FR-JNJFOC-20120611872

PATIENT
  Sex: Male

DRUGS (7)
  1. AMLODIPINE BESYLATE [Suspect]
     Indication: MYOCARDIAL ISCHAEMIA
     Route: 048
  2. KARDEGIC [Suspect]
     Indication: PRODUCT USED FOR UNKNOWN INDICATION
     Route: 048
  3. RAMIPRIL [Suspect]
     Indication: MYOCARDIAL ISCHAEMIA
     Route: 048
  4. NALTREXONE HYDROCHLORIDE [Suspect]
     Indication: ALCOHOL WITHDRAWAL SYNDROME
     Route: 048
     Dates: start: 20120601, end: 20120607
  5. SERTRALINE HYDROCHLORIDE [Suspect]
     Indication: ALCOHOL WITHDRAWAL SYNDROME
     Route: 048
     Dates: start: 20120521, end: 20120612
  6. TOPIRAMATE [Suspect]
     Indication: ALCOHOL WITHDRAWAL SYNDROME
     Route: 048
     Dates: start: 20120521, end: 20120607
  7. ACAMPROSATE CALCIUM [Suspect]
     Indication: ALCOHOL WITHDRAWAL SYNDROME
     Route: 048
     Dates: start: 20120521, end: 20120601

REACTIONS (2)
  - DERMATITIS EXFOLIATIVE [None]
  - CYTOLYTIC HEPATITIS [None]
